FAERS Safety Report 9804854 (Version 2)
Quarter: 2014Q1

REPORT INFORMATION
  Report Type: Report from Study
  Country: US (occurrence: US)
  Receive Date: 20140108
  Receipt Date: 20140108
  Transmission Date: 20141002
  Serious: Yes (Hospitalization)
  Sender: FDA-Public Use
  Company Number: US-ABBVIE-13P-163-1084270-00

PATIENT
  Age: 22 Year
  Sex: Female
  Weight: 70.37 kg

DRUGS (10)
  1. HUMIRA [Suspect]
     Indication: RHEUMATOID ARTHRITIS
     Route: 058
     Dates: start: 20130207, end: 201303
  2. SYNTHROID [Concomitant]
     Indication: PRODUCT USED FOR UNKNOWN INDICATION
  3. SYNTHROID [Concomitant]
  4. PAXIL [Concomitant]
  5. ABILIFY [Concomitant]
  6. KEPPRA [Concomitant]
  7. HYDROCORTISONE [Concomitant]
     Dosage: QPM
  8. HYDROCORTISONE [Concomitant]
     Dosage: QAM
  9. CELEBREX [Concomitant]
     Indication: HEADACHE
     Dosage: AS NEEDED ONCE A DAY
  10. ZOFRAN [Concomitant]
     Indication: NAUSEA
     Dosage: AS NEEDED TWICE A DAY

REACTIONS (5)
  - Hallucination, auditory [Unknown]
  - Migraine [Unknown]
  - Apathy [Unknown]
  - Dysphoria [Unknown]
  - Blood thyroid stimulating hormone decreased [Unknown]
